FAERS Safety Report 7627472-3 (Version None)
Quarter: 2011Q3

REPORT INFORMATION
  Report Type: 
  Country: None (occurrence: None)
  Receive Date: 20110721
  Receipt Date: 20110718
  Transmission Date: 20111222
  Serious: Yes (Other)
  Sender: FDA-Public Use
  Company Number: TR-ELI_LILLY_AND_COMPANY-TR201101004783

PATIENT
  Age: 28 Year
  Sex: Female
  Weight: 91 kg

DRUGS (2)
  1. BYETTA [Suspect]
     Indication: DIABETES MELLITUS
     Dosage: 10 UG, 2/D
     Route: 058
     Dates: start: 20101028, end: 20110102
  2. METFORMIN HCL [Concomitant]
     Dosage: 1000 MG, 2/D

REACTIONS (4)
  - WEIGHT INCREASED [None]
  - PROTEINURIA [None]
  - BLOOD GLUCOSE FLUCTUATION [None]
  - CREATININE URINE INCREASED [None]
